FAERS Safety Report 13633263 (Version 1)
Quarter: 2017Q2

REPORT INFORMATION
  Report Type: Report from Study
  Country: CA (occurrence: CA)
  Receive Date: 20170609
  Receipt Date: 20170609
  Transmission Date: 20170830
  Serious: Yes (Other)
  Sender: FDA-Public Use
  Company Number: CA-HLSUS-2017-CA-000411

PATIENT
  Age: 48 Year
  Sex: Male

DRUGS (8)
  1. LATUDA [Concomitant]
     Active Substance: LURASIDONE HYDROCHLORIDE
     Indication: COUGH
     Dosage: 60MG TWICE A DAY
  2. LAMICTAL [Concomitant]
     Active Substance: LAMOTRIGINE
     Indication: COUGH
     Dosage: 50MG TWICE A DAY
  3. COUGH NOS [Concomitant]
     Active Substance: DEXTROMETHORPHAN HYDROBROMIDE OR DEXTROMETHORPHAN HYDROBROMIDE\DOXYLAMINE SUCCINATE OR DEXTROMETHORPHAN HYDROBROMIDE\GUAIFENESIN OR GUAIFENESIN
     Indication: COUGH
     Dosage: 300MG TWICE A DAY
  4. PANTOLOC [Concomitant]
     Active Substance: PANTOPRAZOLE SODIUM
     Indication: COUGH
     Dosage: 40MG TWICE A DAY
  5. COLACE [Concomitant]
     Active Substance: DOCUSATE SODIUM
     Indication: COUGH
     Dosage: 200MG TWICE A DAY
  6. RIVOTRIL [Concomitant]
     Active Substance: CLONAZEPAM
     Indication: COUGH
     Dosage: 0.5MG THREE TIMES A DAY
  7. REMADRIN [Concomitant]
     Indication: COUGH
     Dosage: 5MG THREE TIMES DAY
  8. CLOZARIL [Suspect]
     Active Substance: CLOZAPINE
     Dosage: 150 MG BED TIME
     Route: 048
     Dates: start: 20170322

REACTIONS (4)
  - C-reactive protein increased [Unknown]
  - Pneumonia [Unknown]
  - Oxygen saturation decreased [Unknown]
  - Myalgia [Unknown]

NARRATIVE: CASE EVENT DATE: 20170412
